FAERS Safety Report 5408333-7 (Version None)
Quarter: 2007Q3

REPORT INFORMATION
  Report Type: 
  Country: None (occurrence: None)
  Receive Date: 20070806
  Receipt Date: 20070806
  Transmission Date: 20080115
  Serious: Yes (Hospitalization)
  Sender: FDA-Public Use
  Company Number: None

PATIENT
  Sex: Male
  Weight: 56.8 kg

DRUGS (2)
  1. FLUOROURACIL [Suspect]
     Dosage: 8576 MG
  2. ELOXATIN [Suspect]
     Dosage: 405 MG

REACTIONS (3)
  - ABDOMINAL PAIN [None]
  - CORONARY ARTERY OCCLUSION [None]
  - MYOCARDIAL INFARCTION [None]
